FAERS Safety Report 9383879 (Version 2)
Quarter: 2013Q3

REPORT INFORMATION
  Report Type: Report from Study
  Country: DE (occurrence: DE)
  Receive Date: 20130704
  Receipt Date: 20130805
  Transmission Date: 20140515
  Serious: Yes (Hospitalization)
  Sender: FDA-Public Use
  Company Number: DE-ROCHE-1244011

PATIENT
  Age: 74 Year
  Sex: Male
  Weight: 63 kg

DRUGS (7)
  1. BEVACIZUMAB [Suspect]
     Indication: COLON CANCER
     Route: 042
  2. OXALIPLATIN [Concomitant]
     Indication: COLON CANCER
     Route: 042
  3. FOLINIC ACID [Concomitant]
     Indication: COLON CANCER
     Route: 042
  4. 5-FU [Concomitant]
     Indication: COLON CANCER
     Route: 040
  5. 5-FU [Concomitant]
     Route: 041
  6. METOCLOPRAMIDE [Concomitant]
     Route: 048
  7. NEXIUM [Concomitant]
     Route: 065

REACTIONS (2)
  - Sinusitis [Recovered/Resolved]
  - General physical health deterioration [Recovered/Resolved]
